FAERS Safety Report 11088229 (Version 1)
Quarter: 2015Q2

REPORT INFORMATION
  Report Type: Spontaneous
  Country: CH (occurrence: None)
  Receive Date: 20150430
  Receipt Date: 20150430
  Transmission Date: 20150821
  Serious: Yes (Hospitalization)
  Sender: FDA-Public Use
  Company Number: US-H14001-15-00615

PATIENT
  Sex: Male

DRUGS (1)
  1. INFUMORPH [Suspect]
     Active Substance: MORPHINE SULFATE
     Indication: PRODUCT USED FOR UNKNOWN INDICATION
     Dosage: 1.15 MG (MILLIGRAM/MILLILITERS), INTRATHECAL?
     Route: 037

REACTIONS (8)
  - Nervousness [None]
  - Restless legs syndrome [None]
  - Drug withdrawal syndrome [None]
  - Anosmia [None]
  - Underdose [None]
  - Decreased appetite [None]
  - Pain [None]
  - Device related infection [None]

NARRATIVE: CASE EVENT DATE: 20150209
